FAERS Safety Report 4658655-2 (Version None)
Quarter: 2005Q2

REPORT INFORMATION
  Report Type: 
  Country: None (occurrence: None)
  Receive Date: 20050509
  Receipt Date: 20050426
  Transmission Date: 20051028
  Serious: Yes (Hospitalization)
  Sender: FDA-Public Use
  Company Number: S05-USA-01947-01

PATIENT
  Age: 37 Year
  Sex: Male

DRUGS (4)
  1. LEXAPRO [Suspect]
     Indication: DEPRESSION
     Dosage: 20 MG QD PO
     Route: 048
     Dates: start: 20040819, end: 20041101
  2. ALCOHOL [Suspect]
     Dates: start: 20040901, end: 20050301
  3. STRATTERA [Concomitant]
  4. CONCERTA [Concomitant]

REACTIONS (16)
  - ABNORMAL BEHAVIOUR [None]
  - AGITATION [None]
  - ALCOHOL USE [None]
  - ANGER [None]
  - DELUSION [None]
  - DIARRHOEA [None]
  - DISEASE RECURRENCE [None]
  - HALLUCINATION [None]
  - HEADACHE [None]
  - HOMICIDAL IDEATION [None]
  - IRRITABILITY [None]
  - MANIA [None]
  - MOOD SWINGS [None]
  - SOMNOLENCE [None]
  - SUICIDAL IDEATION [None]
  - TREATMENT NONCOMPLIANCE [None]
